FAERS Safety Report 7946719-7 (Version None)
Quarter: 2011Q4

REPORT INFORMATION
  Report Type: 
  Country: None (occurrence: None)
  Receive Date: 20111129
  Receipt Date: 20111121
  Transmission Date: 20120403
  Serious: Yes (Other)
  Sender: FDA-Public Use
  Company Number: DE-B.I. PHARMACEUTICALS,INC./RIDGEFIELD-2011-DE-06173DE

PATIENT
  Sex: Female

DRUGS (2)
  1. METOHEXAL RET [Concomitant]
     Dosage: 150 MG
  2. PRADAXA [Suspect]
     Dosage: 300 MG

REACTIONS (1)
  - HEPATIC ENZYME INCREASED [None]
